FAERS Safety Report 5951825-2 (Version None)
Quarter: 2008Q4

REPORT INFORMATION
  Report Type: 
  Country: None (occurrence: None)
  Receive Date: 20081113
  Receipt Date: 20081103
  Transmission Date: 20090506
  Serious: Yes (Hospitalization)
  Sender: FDA-Public Use
  Company Number: B0544591A

PATIENT
  Age: 73 Year
  Sex: Female

DRUGS (7)
  1. AUGMENTIN '125' [Suspect]
     Indication: OSTEOARTHRITIS
     Dosage: 1G THREE TIMES PER DAY
     Route: 048
     Dates: start: 20080818, end: 20080918
  2. DALACINE [Suspect]
     Indication: OSTEOARTHRITIS
     Dosage: 600MG THREE TIMES PER DAY
     Route: 048
     Dates: start: 20080919, end: 20081003
  3. CIPROFLOXACIN HYDROCHLORIDE [Suspect]
     Indication: OSTEOARTHRITIS
     Dosage: 500MG TWICE PER DAY
     Route: 048
     Dates: start: 20080919, end: 20081003
  4. NEXIUM [Suspect]
     Indication: GASTROOESOPHAGEAL REFLUX DISEASE
     Dosage: 40MG PER DAY
     Route: 048
     Dates: start: 20080818, end: 20081008
  5. ALDACTAZINE [Concomitant]
     Indication: DRUG USE FOR UNKNOWN INDICATION
     Route: 065
  6. ATENOLOL [Concomitant]
     Indication: DRUG USE FOR UNKNOWN INDICATION
     Route: 065
  7. LEVOTHYROX [Concomitant]
     Indication: DRUG USE FOR UNKNOWN INDICATION
     Route: 065

REACTIONS (3)
  - CHOLANGITIS [None]
  - CYTOLYTIC HEPATITIS [None]
  - JAUNDICE [None]
